FAERS Safety Report 5581969-9 (Version None)
Quarter: 2008Q1

REPORT INFORMATION
  Report Type: 
  Country: None (occurrence: None)
  Receive Date: 20080104
  Receipt Date: 20080102
  Transmission Date: 20080703
  Serious: Yes (Death)
  Sender: FDA-Public Use
  Company Number: B0501415A

PATIENT
  Age: 87 Year
  Sex: Female

DRUGS (10)
  1. ROSIGLITAZONE [Suspect]
     Dates: start: 20070807, end: 20071122
  2. AVANDAMET [Suspect]
     Route: 048
     Dates: start: 20060706, end: 20070809
  3. LEVOTHYROXINE SODIUM [Concomitant]
     Indication: HYPERTHYROIDISM
     Dosage: 100MCG PER DAY
     Route: 048
     Dates: start: 20010702
  4. ASPIRIN [Concomitant]
     Indication: ANGINA PECTORIS
     Dosage: 75MG PER DAY
     Route: 048
     Dates: start: 20030417
  5. INDAPAMIDE [Concomitant]
     Indication: HYPERTENSION
     Dosage: 15MG PER DAY
     Route: 048
  6. GTN-S [Concomitant]
     Indication: ANGINA PECTORIS
     Dates: start: 20060504
  7. ATORVASTATIN CALCIUM [Concomitant]
     Dosage: 10MG PER DAY
     Route: 048
     Dates: start: 20061130
  8. ATENOLOL [Concomitant]
     Indication: HYPERTENSION
     Dosage: 50MG PER DAY
     Route: 048
     Dates: start: 20010702
  9. PARACETAMOL [Concomitant]
     Dosage: 500MG PER DAY
     Route: 048
  10. GLICLAZIDE [Concomitant]
     Dosage: 30MG PER DAY
     Route: 048
     Dates: start: 20071122

REACTIONS (3)
  - DEATH [None]
  - DYSPNOEA [None]
  - OEDEMA [None]
